FAERS Safety Report 23841106 (Version 1)
Quarter: 2024Q2

REPORT INFORMATION
  Report Type: Spontaneous
  Country: JP (occurrence: JP)
  Receive Date: 20240510
  Receipt Date: 20240510
  Transmission Date: 20240716
  Serious: Yes (Death, Other)
  Sender: FDA-Public Use
  Company Number: JP-BRISTOL-MYERS SQUIBB COMPANY-2024-072233

PATIENT
  Age: 6 Decade
  Sex: Male

DRUGS (3)
  1. YERVOY [Suspect]
     Active Substance: IPILIMUMAB
     Indication: Non-small cell lung cancer
     Route: 041
     Dates: start: 20231030
  2. OPDIVO [Suspect]
     Active Substance: NIVOLUMAB
     Indication: Non-small cell lung cancer
     Route: 041
     Dates: start: 20231030
  3. PLATINUM [Suspect]
     Active Substance: PLATINUM
     Indication: Product used for unknown indication

REACTIONS (4)
  - Cardio-respiratory arrest [Fatal]
  - Hyperthyroidism [Recovered/Resolved]
  - Hypothyroidism [Recovered/Resolved]
  - Physical deconditioning [Unknown]

NARRATIVE: CASE EVENT DATE: 20240101
